FAERS Safety Report 20526328 (Version 1)
Quarter: 2022Q1

REPORT INFORMATION
  Report Type: Spontaneous
  Country: US (occurrence: US)
  Receive Date: 20220228
  Receipt Date: 20220228
  Transmission Date: 20220423
  Serious: Yes (Death)
  Sender: FDA-Public Use
  Company Number: US-TEVA-2022-US-2012401

PATIENT
  Sex: Male

DRUGS (12)
  1. METFORMIN [Suspect]
     Active Substance: METFORMIN HYDROCHLORIDE
     Route: 065
  2. SIMVASTATIN [Suspect]
     Active Substance: SIMVASTATIN
     Route: 065
  3. BENZTROPINE [Suspect]
     Active Substance: BENZTROPINE
     Route: 065
  4. CLONAZEPAM [Suspect]
     Active Substance: CLONAZEPAM
     Route: 065
  5. PAROXETINE [Suspect]
     Active Substance: PAROXETINE
     Route: 065
  6. LEVOTHYROXINE [Suspect]
     Active Substance: LEVOTHYROXINE
     Route: 065
  7. LISINOPRIL [Suspect]
     Active Substance: LISINOPRIL
     Route: 065
  8. COSOPT PF [Suspect]
     Active Substance: DORZOLAMIDE HYDROCHLORIDE\TIMOLOL MALEATE
     Route: 065
  9. ZIOPTAN [Suspect]
     Active Substance: TAFLUPROST
     Route: 065
  10. LANTUS [Suspect]
     Active Substance: INSULIN GLARGINE
     Route: 065
  11. RESTASIS [Suspect]
     Active Substance: CYCLOSPORINE
     Route: 065
  12. JANUVIA [Suspect]
     Active Substance: SITAGLIPTIN PHOSPHATE
     Route: 065

REACTIONS (3)
  - Parkinson^s disease [Fatal]
  - Hypertension [Fatal]
  - Diabetes mellitus [Fatal]
